FAERS Safety Report 4784762-X (Version None)
Quarter: 2005Q3

REPORT INFORMATION
  Report Type: 
  Country: None (occurrence: None)
  Receive Date: 20050929
  Receipt Date: 20050929
  Transmission Date: 20060218
  Serious: Yes (Other)
  Sender: FDA-Public Use
  Company Number: None

PATIENT
  Age: 28 Year
  Sex: Female

DRUGS (2)
  1. DOXYCYLINE 100 MGM PO [Suspect]
     Indication: OESOPHAGEAL ULCER
     Dosage: 100 MGM PO QD
     Route: 048
     Dates: start: 20050110
  2. ORAL CONTRACEPTION [Concomitant]

REACTIONS (1)
  - OESOPHAGEAL ULCER [None]
